FAERS Safety Report 7607124-6 (Version None)
Quarter: 2011Q3

REPORT INFORMATION
  Report Type: 
  Country: None (occurrence: None)
  Receive Date: 20110713
  Receipt Date: 20110630
  Transmission Date: 20111222
  Serious: Yes (Other)
  Sender: FDA-Public Use
  Company Number: US-BAYER-2011-029756

PATIENT
  Age: 43 Year
  Sex: Female
  Weight: 72.562 kg

DRUGS (3)
  1. YAZ [Suspect]
     Indication: MENSTRUAL DISORDER
     Dosage: UNK
     Dates: start: 20050101, end: 20070101
  2. HYDROCHLOROTHIAZIDE [Concomitant]
     Indication: HYPERTENSION
     Dosage: UNK
     Dates: start: 20040101
  3. MULTI-VITAMIN [Concomitant]
     Indication: SUPPLEMENTATION THERAPY

REACTIONS (3)
  - GALLBLADDER DISORDER [None]
  - PAIN [None]
  - CHOLELITHIASIS [None]
